FAERS Safety Report 9643456 (Version 1)
Quarter: 2013Q4

REPORT INFORMATION
  Report Type: Spontaneous
  Country: US (occurrence: US)
  Receive Date: 20131024
  Receipt Date: 20131024
  Transmission Date: 20140711
  Serious: No
  Sender: FDA-Public Use
  Company Number: US-BAYER-2013-129085

PATIENT
  Sex: Female

DRUGS (1)
  1. ALEVE CAPLET [Suspect]
     Indication: ANALGESIC THERAPY
     Dosage: 3 DF ONCE
     Route: 048
     Dates: start: 20131018, end: 20131018

REACTIONS (3)
  - Incorrect dose administered [None]
  - Dizziness [Recovered/Resolved]
  - Visual impairment [Recovered/Resolved]
